FAERS Safety Report 5796455-0 (Version None)
Quarter: 2008Q3

REPORT INFORMATION
  Report Type: 
  Country: None (occurrence: None)
  Receive Date: 20080701
  Receipt Date: 20080619
  Transmission Date: 20090109
  Serious: Yes (Other)
  Sender: FDA-Public Use
  Company Number: PHHY2008GB11864

PATIENT
  Age: 57 Year

DRUGS (1)
  1. TERBINAFINE HCL [Suspect]
     Indication: ONYCHOMYCOSIS
     Dosage: 250 MG/DAY
     Dates: start: 20070910, end: 20080501

REACTIONS (3)
  - COLITIS MICROSCOPIC [None]
  - COLONOSCOPY [None]
  - DIARRHOEA [None]
